FAERS Safety Report 16539030 (Version 1)
Quarter: 2019Q3

REPORT INFORMATION
  Report Type: Spontaneous
  Country: NZ (occurrence: NZ)
  Receive Date: 20190708
  Receipt Date: 20190708
  Transmission Date: 20191004
  Serious: Yes (Hospitalization)
  Sender: FDA-Public Use
  Company Number: NZ-TEVA-2019-NZ-1073579

PATIENT
  Age: 44 Year
  Sex: Female

DRUGS (1)
  1. TOPIRAMATE. [Suspect]
     Active Substance: TOPIRAMATE
     Indication: MIGRAINE
     Route: 065

REACTIONS (3)
  - Angle closure glaucoma [Recovered/Resolved]
  - Ciliary body disorder [Unknown]
  - Myopia [Recovering/Resolving]
